FAERS Safety Report 19372297 (Version 1)
Quarter: 2021Q2

REPORT INFORMATION
  Report Type: Spontaneous
  Country: US (occurrence: US)
  Receive Date: 20210604
  Receipt Date: 20210604
  Transmission Date: 20210717
  Serious: Yes (Hospitalization, Other)
  Sender: FDA-Public Use
  Company Number: US-SHILPA MEDICARE LIMITED-SML-US-2021-00698

PATIENT
  Age: 41 Year
  Sex: Female

DRUGS (23)
  1. IRINOTECAN, UNKNOWN [Suspect]
     Active Substance: IRINOTECAN
     Dosage: CYCLE 4 (FROM DAYS 1 TO 5)
     Route: 042
     Dates: start: 20190722, end: 20190726
  2. HYDROMORPHONE [Suspect]
     Active Substance: HYDROMORPHONE
     Indication: PAIN
     Route: 042
  3. DINUTUXIMAB [Suspect]
     Active Substance: DINUTUXIMAB
     Indication: NEUROBLASTOMA RECURRENT
     Dosage: DINUTUXIMAB RECEIVED IN CYCLES 2 AND 3 ONLY, DAY 2 TO 5
     Route: 042
     Dates: start: 20190507, end: 20190510
  4. ATROPINE. [Suspect]
     Active Substance: ATROPINE
     Indication: PAIN
     Route: 065
  5. MORPHINE [Suspect]
     Active Substance: MORPHINE
     Route: 048
  6. METHADONE [Suspect]
     Active Substance: METHADONE HYDROCHLORIDE
     Indication: NEURALGIA
  7. TEMOZOLOMIDE. [Suspect]
     Active Substance: TEMOZOLOMIDE
     Dosage: CYCLE 2
     Route: 048
     Dates: start: 20190506, end: 20190510
  8. MORPHINE [Suspect]
     Active Substance: MORPHINE
     Indication: PAIN
     Route: 048
  9. METHADONE [Suspect]
     Active Substance: METHADONE HYDROCHLORIDE
     Indication: PAIN
     Route: 048
  10. TEMOZOLOMIDE. [Suspect]
     Active Substance: TEMOZOLOMIDE
     Indication: NEUROBLASTOMA RECURRENT
     Dosage: CYCLE 1
     Route: 048
     Dates: start: 20190416, end: 20190420
  11. DINUTUXIMAB [Suspect]
     Active Substance: DINUTUXIMAB
     Dosage: INITIAL RATE 0.875 MG/M2/H INCREASE INFUSION GRADUALLY MAXIMUM 1.75 MG/M2/H, OVER 10 TO 20 H DAILY
     Route: 042
     Dates: start: 20190605, end: 20190608
  12. OXYCODONE [Suspect]
     Active Substance: OXYCODONE
     Indication: PAIN
     Route: 048
  13. DIPHENHYDRAMINE. [Suspect]
     Active Substance: DIPHENHYDRAMINE
     Indication: PAIN
     Route: 065
  14. IRINOTECAN, UNKNOWN [Suspect]
     Active Substance: IRINOTECAN
     Dosage: CYCLE 3 (FROM DAYS 1 TO 5)
     Route: 042
     Dates: start: 20190604, end: 20190608
  15. TEMOZOLOMIDE. [Suspect]
     Active Substance: TEMOZOLOMIDE
     Dosage: CYCLE 3
     Route: 048
     Dates: start: 20190604, end: 20190608
  16. GABAPENTIN. [Suspect]
     Active Substance: GABAPENTIN
     Indication: PAIN
     Route: 065
  17. IRINOTECAN, UNKNOWN [Suspect]
     Active Substance: IRINOTECAN
     Dosage: CYCLE 2 (FROM DAYS 1 TO 5)
     Route: 042
     Dates: start: 20190506, end: 20190510
  18. TEMOZOLOMIDE. [Suspect]
     Active Substance: TEMOZOLOMIDE
     Dosage: CYCLE 4
     Route: 048
     Dates: start: 20190722, end: 20190726
  19. HYDROMORPHONE [Suspect]
     Active Substance: HYDROMORPHONE
     Indication: NAUSEA
  20. IRINOTECAN, UNKNOWN [Suspect]
     Active Substance: IRINOTECAN
     Indication: NEUROBLASTOMA RECURRENT
     Dosage: CYCLE 1 (FROM DAYS 1 TO 5)
     Route: 042
     Dates: start: 20190416, end: 20190420
  21. DIPHENHYDRAMINE. [Suspect]
     Active Substance: DIPHENHYDRAMINE
     Indication: PRURITUS
  22. PARACETAMOL [Suspect]
     Active Substance: ACETAMINOPHEN
     Indication: PAIN
     Route: 048
  23. PARACETAMOL [Suspect]
     Active Substance: ACETAMINOPHEN
     Indication: PYREXIA

REACTIONS (26)
  - Pruritus [Recovered/Resolved]
  - Sinus tachycardia [Recovered/Resolved]
  - Mental status changes [Recovered/Resolved]
  - Nausea [Recovered/Resolved]
  - Sleep disorder [Recovered/Resolved]
  - Gait disturbance [Recovered/Resolved]
  - Asthenia [Recovered/Resolved]
  - Hypotension [Recovered/Resolved]
  - Neuralgia [Recovered/Resolved]
  - Sedation [Recovered/Resolved]
  - Vision blurred [Recovered/Resolved]
  - Infusion related reaction [Recovered/Resolved]
  - Hypoaesthesia [Recovered/Resolved]
  - Haemodynamic instability [Recovered/Resolved]
  - Diarrhoea [Recovered/Resolved]
  - Electrocardiogram ST segment depression [Recovered/Resolved]
  - Constipation [Recovered/Resolved]
  - Confusional state [Recovered/Resolved]
  - Pyrexia [Recovered/Resolved]
  - Abdominal pain upper [Recovered/Resolved]
  - Bone pain [Recovered/Resolved]
  - Off label use [Unknown]
  - Chest pain [Recovered/Resolved]
  - Pain [Recovered/Resolved]
  - Neuropathy peripheral [Recovered/Resolved]
  - Respiratory depression [Recovered/Resolved]
